FAERS Safety Report 5128556-4 (Version None)
Quarter: 2006Q4

REPORT INFORMATION
  Report Type: 
  Country: None (occurrence: None)
  Receive Date: 20061017
  Receipt Date: 20061011
  Transmission Date: 20070319
  Serious: Yes (Hospitalization)
  Sender: FDA-Public Use
  Company Number: US-GLAXOSMITHKLINE-A0623243A

PATIENT
  Age: 41 Year
  Sex: Female

DRUGS (3)
  1. LOTRONEX [Suspect]
     Indication: IRRITABLE BOWEL SYNDROME
     Route: 048
     Dates: end: 20060901
  2. DESOGEN [Concomitant]
  3. PROVIGIL [Concomitant]

REACTIONS (2)
  - CONSTIPATION [None]
  - SMALL INTESTINAL OBSTRUCTION [None]
